FAERS Safety Report 25368872 (Version 1)
Quarter: 2025Q2

REPORT INFORMATION
  Report Type: Spontaneous
  Country: US (occurrence: US)
  Receive Date: 20250528
  Receipt Date: 20250528
  Transmission Date: 20250717
  Serious: No
  Sender: ALEXION PHARMACEUTICALS
  Company Number: US-AstraZeneca-CH-00872899AP

PATIENT

DRUGS (1)
  1. AIRSUPRA [Suspect]
     Active Substance: ALBUTEROL SULFATE\BUDESONIDE
     Indication: Nasopharyngitis
     Route: 065

REACTIONS (5)
  - Off label use [Unknown]
  - Drug effect less than expected [Unknown]
  - Drug dose omission by device [Unknown]
  - Device defective [Unknown]
  - Device delivery system issue [Unknown]
